FAERS Safety Report 7950050-3 (Version None)
Quarter: 2011Q4

REPORT INFORMATION
  Report Type: 
  Country: None (occurrence: None)
  Receive Date: 20111130
  Receipt Date: 20111129
  Transmission Date: 20120403
  Serious: No
  Sender: FDA-Public Use
  Company Number: US-B.I. PHARMACEUTICALS,INC./RIDGEFIELD-2011-BP-27067BP

PATIENT
  Sex: Female

DRUGS (8)
  1. VITAMIN D [Concomitant]
     Indication: MEDICAL DIET
     Route: 048
     Dates: start: 20080101
  2. ATIVAN [Concomitant]
     Indication: SLEEP DISORDER
     Dosage: 1 MG
     Route: 048
     Dates: start: 20030101
  3. TRADJENTA [Suspect]
     Indication: GLUCOSE TOLERANCE IMPAIRED
     Dosage: 5 MG
     Route: 048
     Dates: start: 20111107
  4. CLONIDINE [Concomitant]
     Indication: BLOOD PRESSURE
     Dosage: 2 MG
     Route: 048
     Dates: start: 20110201
  5. NORVASC [Concomitant]
     Indication: BLOOD PRESSURE
     Dosage: 5 MG
     Route: 048
     Dates: start: 20110201
  6. LIPITOR [Concomitant]
     Indication: BLOOD CHOLESTEROL
     Dosage: 40 MG
     Route: 048
     Dates: start: 20030101
  7. ASPIRIN [Concomitant]
     Indication: BLOOD PRESSURE
     Dosage: 325 MG
     Route: 048
     Dates: start: 20030101
  8. DIOVAN HCT [Concomitant]
     Indication: BLOOD PRESSURE
     Route: 048
     Dates: start: 20030101

REACTIONS (2)
  - BLOOD GLUCOSE INCREASED [None]
  - DRUG INEFFECTIVE [None]
